FAERS Safety Report 12109476 (Version 1)
Quarter: 2016Q1

REPORT INFORMATION
  Report Type: Spontaneous
  Country: US (occurrence: None)
  Receive Date: 20160223
  Receipt Date: 20160223
  Transmission Date: 20160526
  Serious: No
  Sender: FDA-Public Use
  Company Number: None

PATIENT
  Age: 68 Year
  Sex: Female
  Weight: 56.25 kg

DRUGS (1)
  1. TRAZODONE [Suspect]
     Active Substance: TRAZODONE HYDROCHLORIDE
     Indication: INSOMNIA
     Dosage: 1 TABLET
     Route: 048
     Dates: start: 20160222

REACTIONS (4)
  - Product size issue [None]
  - Product quality issue [None]
  - Product difficult to swallow [None]
  - Product solubility abnormal [None]

NARRATIVE: CASE EVENT DATE: 20160222
